FAERS Safety Report 9490818 (Version 1)
Quarter: 2013Q3

REPORT INFORMATION
  Report Type: Other
  Country: GB (occurrence: GB)
  Receive Date: 20130830
  Receipt Date: 20130830
  Transmission Date: 20140515
  Serious: Yes (Other)
  Sender: FDA-Public Use
  Company Number: GB-SUN PHARMACEUTICAL INDUSTRIES LTD-2013SUN04533

PATIENT
  Age: 1 Hour
  Sex: Male
  Weight: 1.86 kg

DRUGS (8)
  1. VENLAFAXINE HYDROCHLORIDE [Suspect]
     Indication: EXPOSURE DURING PREGNANCY
     Route: 064
  2. VENLAFAXINE HYDROCHLORIDE [Suspect]
     Indication: EXPOSURE DURING BREAST FEEDING
  3. PREGABALIN [Suspect]
     Indication: EXPOSURE DURING PREGNANCY
     Route: 064
  4. PREGABALIN [Suspect]
     Indication: EXPOSURE DURING BREAST FEEDING
  5. TEGRETOL [Suspect]
     Indication: EXPOSURE DURING PREGNANCY
     Route: 064
  6. TEGRETOL [Suspect]
     Indication: EXPOSURE DURING BREAST FEEDING
  7. TRAMADOL [Suspect]
     Indication: EXPOSURE DURING PREGNANCY
     Route: 064
  8. TRAMADOL [Suspect]
     Indication: EXPOSURE DURING BREAST FEEDING

REACTIONS (8)
  - Low birth weight baby [Unknown]
  - Apgar score low [Unknown]
  - Foetal exposure during pregnancy [Unknown]
  - Head circumference abnormal [Unknown]
  - Jaundice neonatal [Unknown]
  - Premature baby [Unknown]
  - Neonatal respiratory distress syndrome [Unknown]
  - Exposure during breast feeding [Unknown]
